FAERS Safety Report 20246084 (Version 1)
Quarter: 2021Q4

REPORT INFORMATION
  Report Type: Spontaneous
  Country: US (occurrence: None)
  Receive Date: 20211228
  Receipt Date: 20211228
  Transmission Date: 20220303
  Serious: Yes (Other)
  Sender: FDA-Public Use
  Company Number: None

PATIENT
  Sex: Female

DRUGS (2)
  1. RIZATRIPTAN [Suspect]
     Active Substance: RIZATRIPTAN
  2. SUMATRIPTAN [Suspect]
     Active Substance: SUMATRIPTAN

REACTIONS (1)
  - Chest pain [None]
